FAERS Safety Report 4881570-6 (Version None)
Quarter: 2005Q4

REPORT INFORMATION
  Report Type: 
  Country: None (occurrence: None)
  Receive Date: 20051201
  Receipt Date: 20050928
  Transmission Date: 20060501
  Serious: No
  Sender: FDA-Public Use
  Company Number: 2005PV002597

PATIENT
  Age: 69 Year
  Sex: Female
  Weight: 104.3273 kg

DRUGS (11)
  1. BYETTA [Suspect]
     Indication: DRUG USE FOR UNKNOWN INDICATION
     Dosage: SEE IMAGE
     Route: 058
     Dates: start: 20050826, end: 20050925
  2. BYETTA [Suspect]
     Indication: DRUG USE FOR UNKNOWN INDICATION
     Dosage: SEE IMAGE
     Route: 058
     Dates: start: 20050926
  3. AVANDIA [Concomitant]
  4. STARLIX [Concomitant]
  5. LISINOPRIL [Concomitant]
  6. TOPROL [Concomitant]
  7. SYNTHROID [Concomitant]
  8. GEMFIBROCIL [Concomitant]
  9. ASPIRIN [Concomitant]
  10. GLUCOSAMINE COMPLEX [Concomitant]
  11. TYLENOL [Concomitant]

REACTIONS (6)
  - ANOREXIA [None]
  - HUNGER [None]
  - PRURITUS [None]
  - URINE ODOUR ABNORMAL [None]
  - WEIGHT DECREASED [None]
  - WEIGHT INCREASED [None]
